FAERS Safety Report 16608929 (Version 1)
Quarter: 2019Q3

REPORT INFORMATION
  Report Type: Spontaneous
  Country: US (occurrence: US)
  Receive Date: 20190719
  Receipt Date: 20190719
  Transmission Date: 20191004
  Serious: Yes (Hospitalization, Disabling)
  Sender: FDA-Public Use
  Company Number: None

PATIENT
  Age: 57 Year
  Sex: Female
  Weight: 54 kg

DRUGS (2)
  1. KLONOPIN [Suspect]
     Active Substance: CLONAZEPAM
     Indication: ANXIETY
     Dosage: ?          QUANTITY:1 TABLET(S);?
     Route: 048
     Dates: start: 19940210, end: 20111029
  2. IBUPROFEN. [Concomitant]
     Active Substance: IBUPROFEN

REACTIONS (35)
  - Asthenia [None]
  - Impaired driving ability [None]
  - Palpitations [None]
  - Tremor [None]
  - Body temperature increased [None]
  - Hyperhidrosis [None]
  - Oral herpes [None]
  - Quality of life decreased [None]
  - Irritable bowel syndrome [None]
  - Incorrect product administration duration [None]
  - Drug hypersensitivity [None]
  - Muscle spasms [None]
  - Fear [None]
  - Food allergy [None]
  - Chills [None]
  - Pain [None]
  - Flat affect [None]
  - Drug intolerance [None]
  - Rash [None]
  - Fatigue [None]
  - Choking [None]
  - Anxiety [None]
  - Dizziness [None]
  - Hair growth rate abnormal [None]
  - Heart rate irregular [None]
  - Nightmare [None]
  - Unevaluable event [None]
  - Tooth disorder [None]
  - Retching [None]
  - Tinnitus [None]
  - Parosmia [None]
  - Somnolence [None]
  - Headache [None]
  - Swollen tongue [None]
  - Oesophageal spasm [None]

NARRATIVE: CASE EVENT DATE: 20111029
